FAERS Safety Report 10025473 (Version 1)
Quarter: 2014Q1

REPORT INFORMATION
  Report Type: Spontaneous
  Country: US (occurrence: None)
  Receive Date: 20140314
  Receipt Date: 20140314
  Transmission Date: 20141002
  Serious: Yes (Hospitalization)
  Sender: FDA-Public Use
  Company Number: 2230067

PATIENT
  Age: 20 Year
  Sex: Female

DRUGS (2)
  1. PROPOFOL [Suspect]
     Indication: SEDATIVE THERAPY
     Route: 041
  2. (ASPIRIN) [Concomitant]

REACTIONS (8)
  - Respiratory distress [None]
  - Chest discomfort [None]
  - Breath sounds abnormal [None]
  - Pleural effusion [None]
  - Shock haemorrhagic [None]
  - Incorrect route of drug administration [None]
  - Wrong technique in drug usage process [None]
  - Vena cava injury [None]
